FAERS Safety Report 4853072-4 (Version None)
Quarter: 2005Q4

REPORT INFORMATION
  Report Type: 
  Country: None (occurrence: None)
  Receive Date: 20051212
  Receipt Date: 20051118
  Transmission Date: 20060501
  Serious: No
  Sender: FDA-Public Use
  Company Number: USA020718381

PATIENT
  Sex: Male

DRUGS (2)
  1. HUMULIN R [Suspect]
     Indication: DIABETES MELLITUS
     Dosage: SUBCUTANEOUS
     Route: 058
  2. HUMULIN L [Suspect]
     Indication: DIABETES MELLITUS
     Dosage: 28 U, DAILY (1/D), SUBCUTANEOUS
     Route: 058

REACTIONS (5)
  - BLOOD GLUCOSE INCREASED [None]
  - CEREBROVASCULAR ACCIDENT [None]
  - NAUSEA [None]
  - PHARMACEUTICAL PRODUCT COMPLAINT [None]
  - POOR QUALITY DRUG ADMINISTERED [None]
